FAERS Safety Report 6788344-X (Version None)
Quarter: 2010Q2

REPORT INFORMATION
  Report Type: 
  Country: None (occurrence: None)
  Receive Date: 20100623
  Receipt Date: 20080322
  Transmission Date: 20101027
  Serious: No
  Sender: FDA-Public Use
  Company Number: US-PFIZER INC-2008015569

PATIENT
  Sex: Male
  Weight: 24.5 kg

DRUGS (2)
  1. GENOTROPIN [Suspect]
     Indication: GROWTH HORMONE DEFICIENCY
     Route: 058
     Dates: start: 20080219
  2. SYNTHROID [Concomitant]
     Route: 048

REACTIONS (2)
  - RASH [None]
  - URTICARIA [None]
